FAERS Safety Report 9792496 (Version 1)
Quarter: 2014Q1

REPORT INFORMATION
  Report Type: Spontaneous
  Country: FR (occurrence: FR)
  Receive Date: 20140102
  Receipt Date: 20140102
  Transmission Date: 20141002
  Serious: Yes (Hospitalization, Other)
  Sender: FDA-Public Use
  Company Number: FR-ALLERGAN-1320220US

PATIENT
  Age: 66 Year
  Sex: Female

DRUGS (3)
  1. COMBIGAN [Suspect]
     Indication: ANGLE CLOSURE GLAUCOMA
     Dosage: 1 DROPX2
     Route: 047
     Dates: start: 20120601, end: 20130601
  2. CRESTOR [Concomitant]
     Indication: HYPERCHOLESTEROLAEMIA
     Dosage: UNK
  3. MIMPARA [Concomitant]
     Indication: HYPERPARATHYROIDISM
     Dosage: UNK
     Dates: start: 2011

REACTIONS (3)
  - Loss of consciousness [Recovered/Resolved]
  - Malaise [Recovered/Resolved]
  - Hypotension [Recovered/Resolved]
